FAERS Safety Report 8763641 (Version 1)
Quarter: 2012Q4

REPORT INFORMATION
  Report Type: Spontaneous
  Country: US (occurrence: None)
  Receive Date: 20120831
  Receipt Date: 20120831
  Transmission Date: 20130627
  Serious: Yes (Hospitalization)
  Sender: FDA-Public Use
  Company Number: None

PATIENT
  Age: 58 Year
  Sex: Male

DRUGS (2)
  1. RIBAVIRIN [Suspect]
     Route: 048
     Dates: start: 20120518
  2. PEGASYS [Suspect]
     Route: 058
     Dates: start: 20120518

REACTIONS (4)
  - Dizziness [None]
  - Gait disturbance [None]
  - Muscular weakness [None]
  - Transfusion [None]
